FAERS Safety Report 20414624 (Version 3)
Quarter: 2022Q2

REPORT INFORMATION
  Report Type: Other
  Country: US (occurrence: None)
  Receive Date: 20220202
  Receipt Date: 20220412
  Transmission Date: 20220721
  Serious: Yes (Hospitalization)
  Sender: FDA-Public Use
  Company Number: US-ROCHE-3011872

PATIENT
  Age: 62 Year
  Sex: Male
  Weight: 63.560 kg

DRUGS (2)
  1. OCREVUS [Suspect]
     Active Substance: OCRELIZUMAB
     Indication: Progressive relapsing multiple sclerosis
     Dosage: INITIALLY 300 MG DAY 1 AND DAY 15. DATE OF TREATMENT: 09/MAY/2018, 14/JAN/2021, 09/MAY/2018,15/JUL/2
     Route: 042
     Dates: start: 20180426
  2. MECLIZINE [Concomitant]
     Active Substance: MECLIZINE HYDROCHLORIDE

REACTIONS (5)
  - COVID-19 [Recovered/Resolved]
  - Decreased appetite [Recovering/Resolving]
  - Asthenia [Recovering/Resolving]
  - Fatigue [Recovering/Resolving]
  - Sluggishness [Unknown]

NARRATIVE: CASE EVENT DATE: 20220118
